FAERS Safety Report 17601852 (Version 7)
Quarter: 2020Q2

REPORT INFORMATION
  Report Type: Spontaneous
  Country: JP (occurrence: JP)
  Receive Date: 20200331
  Receipt Date: 20200615
  Transmission Date: 20200713
  Serious: Yes (Other)
  Sender: FDA-Public Use
  Company Number: JP-ASTELLAS-2020JP005225

PATIENT
  Age: 80 Year
  Sex: Male

DRUGS (4)
  1. XOSPATA [Suspect]
     Active Substance: GILTERITINIB
     Route: 048
     Dates: start: 20200515
  2. ACETAMINOPHEN. [Concomitant]
     Active Substance: ACETAMINOPHEN
     Indication: PYREXIA
     Dosage: UNK UNK, UNKNOWN FREQ.
     Route: 065
     Dates: start: 202003
  3. NEOPHAGEN [CYSTEINE;GLYCINE;GLYCYRRHIZIC ACID] [Concomitant]
     Indication: HEPATIC FUNCTION ABNORMAL
     Dosage: UNK UNK, UNKNOWN FREQ.
     Route: 065
     Dates: start: 202003
  4. XOSPATA [Suspect]
     Active Substance: GILTERITINIB
     Indication: ACUTE MYELOID LEUKAEMIA
     Route: 048
     Dates: start: 20200305

REACTIONS (8)
  - Tremor [Not Recovered/Not Resolved]
  - Pyrexia [Recovered/Resolved]
  - Platelet count decreased [Not Recovered/Not Resolved]
  - White blood cell count decreased [Not Recovered/Not Resolved]
  - Platelet count decreased [Unknown]
  - Anaemia [Recovering/Resolving]
  - Hepatic function abnormal [Recovered/Resolved]
  - Urinary tract infection [Not Recovered/Not Resolved]

NARRATIVE: CASE EVENT DATE: 202003
